FAERS Safety Report 5287551-5 (Version None)
Quarter: 2007Q1

REPORT INFORMATION
  Report Type: 
  Country: None (occurrence: None)
  Receive Date: 20070126
  Receipt Date: 20061107
  Transmission Date: 20070707
  Serious: No
  Sender: FDA-Public Use
  Company Number: 2006CT000922

PATIENT
  Age: 76 Year
  Sex: Male
  Weight: 90 kg

DRUGS (10)
  1. VENTAVIS [Suspect]
     Indication: PULMONARY HYPERTENSION
     Dosage: 5 UG;6XD;INH
     Route: 055
     Dates: start: 20060912, end: 20061107
  2. WARFARIN SODIUM [Concomitant]
  3. ATORVASTATIN CALCIUM [Concomitant]
  4. PLAVIX [Concomitant]
  5. PRIMIDONE [Concomitant]
  6. PROSCAR [Concomitant]
  7. REQUIP [Concomitant]
  8. LASIX [Concomitant]
  9. TOPROL-XL [Concomitant]
  10. TAMSULOSIN HCL [Concomitant]

REACTIONS (2)
  - LETHARGY [None]
  - PALPITATIONS [None]
